FAERS Safety Report 4507276-0 (Version None)
Quarter: 2004Q4

REPORT INFORMATION
  Report Type: 
  Country: None (occurrence: None)
  Receive Date: 20041025
  Receipt Date: 20040521
  Transmission Date: 20050328
  Serious: Yes (Hospitalization)
  Sender: FDA-Public Use
  Company Number: US-JNJFOC-20040505504

PATIENT
  Age: 71 Year
  Sex: Female

DRUGS (10)
  1. INFLIXIMAB  (INFLIXIMAB, RECOMBINANT) LYOPHILIZED POWDER [Suspect]
     Indication: RHEUMATOID ARTHRITIS
     Dosage: SEE IMAGE
     Route: 042
     Dates: start: 20011217
  2. FOSAMAX [Concomitant]
  3. LASIX [Concomitant]
  4. OSCAL D (LEKOVIT CA) [Concomitant]
  5. TRACHEER/BOSENTA (ALL OTHER THERAPEUTIC PRODUCT) [Concomitant]
  6. AMBIEN [Concomitant]
  7. COUMADIN (WARFARIN SODIUIM) [Concomitant]
  8. PLAQUENIL (HYDROXYCHLLOROQUINE PHOSPHATE) [Concomitant]
  9. SYNTHROID [Concomitant]
  10. TYLENOL [Concomitant]

REACTIONS (1)
  - PNEUMONIA [None]
